FAERS Safety Report 21915359 (Version 1)
Quarter: 2023Q1

REPORT INFORMATION
  Report Type: Other
  Country: CA (occurrence: None)
  Receive Date: 20230126
  Receipt Date: 20230126
  Transmission Date: 20230418
  Serious: Yes (Other)
  Sender: FDA-Public Use
  Company Number: CA-ROCHE-3108004

PATIENT
  Sex: Male
  Weight: 103 kg

DRUGS (3)
  1. EVRYSDI [Suspect]
     Active Substance: RISDIPLAM
     Indication: Spinal muscular atrophy
     Route: 048
     Dates: start: 20210827, end: 20220613
  2. EVRYSDI [Suspect]
     Active Substance: RISDIPLAM
     Route: 048
     Dates: start: 20220803
  3. VENTOLIN [Concomitant]
     Active Substance: ALBUTEROL SULFATE
     Indication: Asthma

REACTIONS (14)
  - Dysuria [Unknown]
  - Pollakiuria [Unknown]
  - Urinary retention [Unknown]
  - Scrotal swelling [Unknown]
  - Scrotal pain [Unknown]
  - Drug ineffective [Unknown]
  - Asthenia [Unknown]
  - Dysuria [Unknown]
  - Muscle atrophy [Unknown]
  - Dyspnoea exertional [Unknown]
  - Insomnia [Unknown]
  - Muscular weakness [Unknown]
  - Weight decreased [Unknown]
  - Decreased appetite [Unknown]

NARRATIVE: CASE EVENT DATE: 20220101
